FAERS Safety Report 18462177 (Version 2)
Quarter: 2020Q4

REPORT INFORMATION
  Report Type: Spontaneous
  Country: JP (occurrence: JP)
  Receive Date: 20201104
  Receipt Date: 20201223
  Transmission Date: 20210114
  Serious: Yes (Death, Other)
  Sender: FDA-Public Use
  Company Number: JP-009507513-2011JPN000087J

PATIENT
  Age: 61 Year
  Sex: Female

DRUGS (2)
  1. PEMETREXED DISODIUM [Concomitant]
     Active Substance: PEMETREXED DISODIUM
     Dosage: UNK
     Route: 065
  2. KEYTRUDA [Suspect]
     Active Substance: PEMBROLIZUMAB
     Dosage: 200 MILLIGRAM, Q3W
     Route: 041
     Dates: start: 202006, end: 202007

REACTIONS (4)
  - Thyroid disorder [Recovering/Resolving]
  - Interstitial lung disease [Fatal]
  - Hepatic function abnormal [Recovering/Resolving]
  - Renal impairment [Recovering/Resolving]

NARRATIVE: CASE EVENT DATE: 202006
